FAERS Safety Report 23504183 (Version 3)
Quarter: 2024Q1

REPORT INFORMATION
  Report Type: Report from Study
  Country: US (occurrence: US)
  Receive Date: 20240209
  Receipt Date: 20240301
  Transmission Date: 20240410
  Serious: Yes (Other)
  Sender: FDA-Public Use
  Company Number: US-UCBSA-2023046672

PATIENT
  Sex: Female
  Weight: 86 kg

DRUGS (13)
  1. FINTEPLA [Suspect]
     Active Substance: FENFLURAMINE
     Indication: Lennox-Gastaut syndrome
     Dosage: 0.2 MG/KG/DAY
     Dates: start: 20230803
  2. FINTEPLA [Suspect]
     Active Substance: FENFLURAMINE
     Dosage: 4 MILLILITER, 2X/DAY (BID)
     Dates: start: 20230804, end: 2023
  3. FINTEPLA [Suspect]
     Active Substance: FENFLURAMINE
     Dosage: 6 MILLILITER, 2X/DAY (BID)
  4. FINTEPLA [Suspect]
     Active Substance: FENFLURAMINE
     Dosage: 6 MILLILITER, 2X/DAY (BID)
  5. FINTEPLA [Suspect]
     Active Substance: FENFLURAMINE
     Dosage: 26.4 MILLIGRAM/DAY (TOTAL 0.30 MG/KG/DAY)
  6. FINTEPLA [Suspect]
     Active Substance: FENFLURAMINE
     Dosage: 0.25 MG/KG/DAY
     Dates: start: 20230913
  7. FINTEPLA [Suspect]
     Active Substance: FENFLURAMINE
     Dosage: 0.3 MG/KG/DAY
     Dates: start: 20231115
  8. FINTEPLA [Suspect]
     Active Substance: FENFLURAMINE
     Dosage: 0.1 MG/KG/DAY
     Dates: start: 20240208, end: 20240215
  9. FINTEPLA [Suspect]
     Active Substance: FENFLURAMINE
     Dosage: UNK
  10. XCOPRI [Concomitant]
     Active Substance: CENOBAMATE
     Indication: Product used for unknown indication
     Dosage: 50 MILLIGRAM/DAILY
  11. LAMICTAL [Concomitant]
     Active Substance: LAMOTRIGINE
     Indication: Product used for unknown indication
     Dosage: 225 (UNIT NOT REPORTED) BID
  12. FYCOMPA [Concomitant]
     Active Substance: PERAMPANEL
     Indication: Product used for unknown indication
     Dosage: 12 MILLIGRAM, ONCE DAILY (QD)
  13. TRILEPTAL [Concomitant]
     Active Substance: OXCARBAZEPINE
     Indication: Product used for unknown indication
     Dosage: UNK

REACTIONS (9)
  - Pulmonary arterial hypertension [Not Recovered/Not Resolved]
  - Tricuspid valve incompetence [Unknown]
  - Irritability [Not Recovered/Not Resolved]
  - Mood swings [Not Recovered/Not Resolved]
  - Cough [Unknown]
  - Abdominal pain upper [Not Recovered/Not Resolved]
  - Feeling cold [Unknown]
  - Hypotension [Unknown]
  - Drug ineffective [Unknown]

NARRATIVE: CASE EVENT DATE: 20230101
